FAERS Safety Report 6211047-7 (Version None)
Quarter: 2009Q2

REPORT INFORMATION
  Report Type: 
  Country: None (occurrence: None)
  Receive Date: 20090528
  Receipt Date: 20090527
  Transmission Date: 20091009
  Serious: Yes (Hospitalization)
  Sender: FDA-Public Use
  Company Number: 2009-GWUS-0372

PATIENT
  Age: 86 Year
  Sex: Male

DRUGS (2)
  1. NORFLEX [Suspect]
     Indication: MUSCLE STRAIN
  2. UNKNOWN MUSCLE RELAXANT [Concomitant]

REACTIONS (8)
  - CLAVICLE FRACTURE [None]
  - CONFUSIONAL STATE [None]
  - DELIRIUM [None]
  - FALL [None]
  - HALLUCINATION [None]
  - LUMBAR VERTEBRAL FRACTURE [None]
  - SPINAL COMPRESSION FRACTURE [None]
  - THORACIC VERTEBRAL FRACTURE [None]
